FAERS Safety Report 5756939-8 (Version None)
Quarter: 2008Q2

REPORT INFORMATION
  Report Type: 
  Country: None (occurrence: None)
  Receive Date: 20080529
  Receipt Date: 20080523
  Transmission Date: 20081010
  Serious: Yes (Death, Hospitalization)
  Sender: FDA-Public Use
  Company Number: 2008SP008807

PATIENT
  Age: 59 Year
  Sex: Female

DRUGS (7)
  1. TEMODAR [Suspect]
     Indication: GLIOBLASTOMA MULTIFORME
     Dosage: 130 MG;QD;PO
     Route: 048
     Dates: start: 20080319
  2. TRILEPTAL [Concomitant]
  3. DECADRON [Concomitant]
  4. PERCOCET [Concomitant]
  5. NIZORAL [Concomitant]
  6. ENJUVIA [Concomitant]
  7. ZOFRAN [Concomitant]

REACTIONS (10)
  - BLOOD CREATININE INCREASED [None]
  - BONE MARROW FAILURE [None]
  - DEHYDRATION [None]
  - FEBRILE NEUTROPENIA [None]
  - HYPERGLYCAEMIA [None]
  - HYPOKALAEMIA [None]
  - HYPOPHOSPHATAEMIA [None]
  - OXYGEN SATURATION DECREASED [None]
  - PANCYTOPENIA [None]
  - SEPTIC SHOCK [None]
